FAERS Safety Report 14425877 (Version 1)
Quarter: 2018Q1

REPORT INFORMATION
  Report Type: Spontaneous
  Country: US (occurrence: US)
  Receive Date: 20180123
  Receipt Date: 20180123
  Transmission Date: 20180509
  Serious: No
  Sender: FDA-Public Use
  Company Number: None

PATIENT
  Age: 87 Year
  Sex: Female
  Weight: 65.77 kg

DRUGS (6)
  1. I CAP [Concomitant]
  2. CALCIUM [Concomitant]
     Active Substance: CALCIUM
  3. GLUCOSAMINE [Concomitant]
     Active Substance: GLUCOSAMINE
  4. CALCITONIN SALMON NASAL SPRAY [Suspect]
     Active Substance: CALCITONIN SALMON
     Indication: BONE LOSS
     Dosage: ONCE A DAY IN NOSE, 1 DAY 1 SIDE/NEXT DAY OTHER SIDE
     Route: 045
     Dates: start: 20180104, end: 20180105
  5. ONE-A-DAY NOS [Concomitant]
     Active Substance: MINERALS\VITAMINS
  6. VITAMIN D3 [Concomitant]
     Active Substance: CHOLECALCIFEROL

REACTIONS (7)
  - Heart rate increased [None]
  - Dizziness [None]
  - Fatigue [None]
  - Arthralgia [None]
  - Nervousness [None]
  - Anxiety [None]
  - Nausea [None]

NARRATIVE: CASE EVENT DATE: 20180104
